FAERS Safety Report 9555655 (Version 2)
Quarter: 2013Q4

REPORT INFORMATION
  Report Type: Spontaneous
  Country: US (occurrence: None)
  Receive Date: 20130724
  Receipt Date: 20131226
  Transmission Date: 20140711
  Serious: Yes (Other)
  Sender: FDA-Public Use
  Company Number: PHEH2013US005290

PATIENT
  Age: 43 Year
  Sex: Male
  Weight: 78 kg

DRUGS (6)
  1. GILENYA (FINGOLIMOD) CAPSULE, 0.5MG [Suspect]
     Indication: RELAPSING-REMITTING MULTIPLE SCLEROSIS
     Route: 048
     Dates: start: 20121210, end: 20130305
  2. LEXAPRO (ESCITALOPRAM OXALATE) [Concomitant]
  3. VIT D (ERGOCALCIFEROL) [Concomitant]
  4. PROBIOTICS (NO INGREDIENTS/SUBSTANCES) [Concomitant]
  5. DIMETHYL FUMARATE (DIMETHYL FUMARATE) [Concomitant]
  6. METANX (CALCIUM MEFOLINATE, PYRIDOXINE HYDROCHLORIDE, VITAMIN B12 NOS [Concomitant]

REACTIONS (6)
  - Liver function test abnormal [None]
  - Nausea [None]
  - Diarrhoea [None]
  - Blood alkaline phosphatase increased [None]
  - Aspartate aminotransferase increased [None]
  - Alanine aminotransferase increased [None]
